FAERS Safety Report 4848429-1 (Version None)
Quarter: 2005Q4

REPORT INFORMATION
  Report Type: 
  Country: None (occurrence: None)
  Receive Date: 20051208
  Receipt Date: 20051026
  Transmission Date: 20060501
  Serious: Yes (Hospitalization)
  Sender: FDA-Public Use
  Company Number: AU-GLAXOSMITHKLINE-B0398695A

PATIENT
  Sex: Female

DRUGS (1)
  1. ZYBAN [Suspect]
     Indication: DRUG USE FOR UNKNOWN INDICATION
     Route: 065

REACTIONS (7)
  - AGGRESSION [None]
  - APPETITE DISORDER [None]
  - DEPRESSION [None]
  - HOSTILITY [None]
  - IRRITABILITY [None]
  - MOOD SWINGS [None]
  - TINNITUS [None]
